FAERS Safety Report 9674190 (Version 2)
Quarter: 2013Q4

REPORT INFORMATION
  Report Type: Spontaneous
  Country: US (occurrence: US)
  Receive Date: 20131106
  Receipt Date: 20131227
  Transmission Date: 20140711
  Serious: No
  Sender: FDA-Public Use
  Company Number: US-009507513-1310USA015103

PATIENT
  Age: 81 Year
  Sex: Female
  Weight: 113.38 kg

DRUGS (5)
  1. OXYTROL FOR WOMEN [Suspect]
     Indication: HYPERTONIC BLADDER
     Dosage: 1 DF, Q4D
     Route: 062
     Dates: start: 201310, end: 201311
  2. OXYTROL FOR WOMEN [Suspect]
     Indication: INCONTINENCE
  3. EVISTA [Concomitant]
     Indication: PRODUCT USED FOR UNKNOWN INDICATION
     Dosage: UNK, UNKNOWN
  4. LEVOXYL [Concomitant]
     Indication: PRODUCT USED FOR UNKNOWN INDICATION
     Dosage: UNK, UNKNOWN
  5. TENORETIC [Concomitant]
     Indication: HYPERTENSION
     Dosage: UNK, UNKNOWN

REACTIONS (1)
  - Drug ineffective [Unknown]
